FAERS Safety Report 6940208-4 (Version None)
Quarter: 2010Q3

REPORT INFORMATION
  Report Type: 
  Country: None (occurrence: None)
  Receive Date: 20100825
  Receipt Date: 20100816
  Transmission Date: 20110219
  Serious: Yes (Other)
  Sender: FDA-Public Use
  Company Number: BR-JNJFOC-20100806702

PATIENT
  Sex: Female

DRUGS (1)
  1. ORTHO EVRA [Suspect]
     Indication: OVARIAN CYST
     Dosage: EACH CYCLE CONSISTS OF: 1 PATCH A  WEEK, DURING 3 WEEKS, FOLLOWED BY 1  PATCH FREE WEEK
     Route: 062

REACTIONS (3)
  - HAEMORRHAGIC CYST [None]
  - OFF LABEL USE [None]
  - THERAPEUTIC RESPONSE UNEXPECTED [None]
